FAERS Safety Report 10860566 (Version 2)
Quarter: 2015Q1

REPORT INFORMATION
  Report Type: Spontaneous
  Country: US (occurrence: US)
  Receive Date: 20150223
  Receipt Date: 20150327
  Transmission Date: 20150721
  Serious: Yes (Hospitalization, Other)
  Sender: FDA-Public Use
  Company Number: US-CELGENEUS-USA-2015022906

PATIENT
  Age: 52 Year
  Sex: Female

DRUGS (1)
  1. REVLIMID [Suspect]
     Active Substance: LENALIDOMIDE
     Indication: PLASMA CELL LEUKAEMIA
     Dosage: 25 MILLIGRAM
     Route: 048
     Dates: start: 20150206

REACTIONS (2)
  - Human chorionic gonadotropin increased [Unknown]
  - Viral infection [Unknown]

NARRATIVE: CASE EVENT DATE: 20150210
